FAERS Safety Report 8505908-3 (Version None)
Quarter: 2012Q3

REPORT INFORMATION
  Report Type: 
  Country: None (occurrence: None)
  Receive Date: 20120712
  Receipt Date: 20120703
  Transmission Date: 20120928
  Serious: Yes (Hospitalization)
  Sender: FDA-Public Use
  Company Number: US-VERTEX PHARMACEUTICALS INC.-AE-2012-009905

PATIENT
  Sex: Female

DRUGS (4)
  1. RIBAVIRIN [Concomitant]
     Indication: HEPATITIS C
     Dates: start: 20120502
  2. PEGASYS [Concomitant]
     Indication: HEPATITIS C
     Dates: start: 20120502
  3. RIBAVIRIN [Concomitant]
  4. INCIVEK [Suspect]
     Indication: HEPATITIS C
     Route: 048
     Dates: start: 20120502

REACTIONS (6)
  - DEHYDRATION [None]
  - DRY SKIN [None]
  - NAUSEA [None]
  - ANAEMIA [None]
  - PRURITUS [None]
  - VOMITING [None]
